FAERS Safety Report 11925086 (Version 1)
Quarter: 2016Q1

REPORT INFORMATION
  Report Type: Report from Study
  Country: AR (occurrence: AR)
  Receive Date: 20160118
  Receipt Date: 20160118
  Transmission Date: 20160526
  Serious: Yes (Hospitalization, Other)
  Sender: FDA-Public Use
  Company Number: PHHY2015AR170492

PATIENT
  Sex: Female

DRUGS (3)
  1. DIOVAN [Suspect]
     Active Substance: VALSARTAN
     Indication: HYPERTENSION
     Dosage: 80 MG, QD
     Route: 065
     Dates: start: 2008
  2. DIOVAN [Suspect]
     Active Substance: VALSARTAN
     Dosage: 160 MG, UNK
     Route: 065
  3. DIOVAN [Suspect]
     Active Substance: VALSARTAN
     Dosage: 320 MG, UNK
     Route: 065
     Dates: start: 2010

REACTIONS (11)
  - Biliary colic [Recovered/Resolved]
  - Intervertebral disc displacement [Recovering/Resolving]
  - Thyroid disorder [Recovered/Resolved with Sequelae]
  - Varicose vein [Unknown]
  - Brain compression [Recovering/Resolving]
  - Fall [Recovering/Resolving]
  - Goitre [Recovered/Resolved with Sequelae]
  - Mobility decreased [Recovering/Resolving]
  - Blood pressure inadequately controlled [Unknown]
  - Spinal cord neoplasm [Recovered/Resolved]
  - Spinal disorder [Recovered/Resolved]

NARRATIVE: CASE EVENT DATE: 2011
